FAERS Safety Report 7743254-6 (Version None)
Quarter: 2011Q3

REPORT INFORMATION
  Report Type: 
  Country: None (occurrence: None)
  Receive Date: 20110912
  Receipt Date: 20110906
  Transmission Date: 20111222
  Serious: Yes (Death)
  Sender: FDA-Public Use
  Company Number: LB-SANOFI-AVENTIS-2011SA054899

PATIENT
  Age: 55 Year
  Sex: Female
  Weight: 60 kg

DRUGS (13)
  1. LEXOTANIL [Concomitant]
  2. AVASTIN [Suspect]
  3. TRIPTIZOL [Concomitant]
  4. ELOXATIN [Suspect]
     Route: 042
  5. XELODA [Suspect]
     Indication: COLORECTAL CANCER
     Route: 048
     Dates: start: 20110616
  6. BISOPROLOL FUMARATE [Concomitant]
  7. TRIFLUOPERAZINE HCL [Concomitant]
  8. EFUDEX [Suspect]
     Indication: COLORECTAL CANCER
     Route: 042
     Dates: start: 20110616, end: 20110616
  9. EFUDEX [Suspect]
     Route: 042
  10. BENZHEXOL [Concomitant]
  11. AVASTIN [Suspect]
     Indication: COLORECTAL CANCER
     Dates: start: 20110616, end: 20110616
  12. SINTROM [Concomitant]
  13. ELOXATIN [Suspect]
     Indication: COLORECTAL CANCER
     Route: 042
     Dates: start: 20110616, end: 20110616

REACTIONS (1)
  - SUDDEN DEATH [None]
